FAERS Safety Report 4499743-3 (Version None)
Quarter: 2004Q4

REPORT INFORMATION
  Report Type: 
  Country: None (occurrence: None)
  Receive Date: 20041112
  Receipt Date: 20041103
  Transmission Date: 20050328
  Serious: Yes (Hospitalization)
  Sender: FDA-Public Use
  Company Number: 200418611US

PATIENT
  Sex: Female
  Weight: 106.1 kg

DRUGS (12)
  1. LANTUS [Suspect]
     Indication: DIABETES MELLITUS
     Dosage: DOSE UNIT: UNITS
     Route: 058
     Dates: start: 20040629
  2. GLUCOTROL XL [Suspect]
     Indication: DIABETES MELLITUS
     Route: 048
     Dates: start: 20040106
  3. METFORMIN [Suspect]
     Indication: DIABETES MELLITUS
     Route: 048
     Dates: start: 20040410
  4. LOTENSIN HCT [Suspect]
     Indication: HYPERTENSION
     Dosage: DOSE: 20/125
     Route: 048
     Dates: start: 20040120
  5. PLAVIX [Suspect]
     Indication: CORONARY ARTERY DISEASE
     Route: 048
     Dates: start: 20031218
  6. CRESTOR [Suspect]
     Route: 048
     Dates: start: 20040120
  7. CELEBREX [Suspect]
     Indication: PAIN
     Route: 048
     Dates: start: 20040608
  8. ECOTRIN [Suspect]
     Indication: CORONARY ARTERY DISEASE
     Route: 048
     Dates: start: 20031218
  9. ISOSORBIDE [Suspect]
     Indication: HYPERTENSION
     Route: 048
     Dates: start: 20041218
  10. NEURONTIN [Suspect]
     Indication: PAIN
     Route: 048
     Dates: start: 20040608
  11. SSRI [Suspect]
     Indication: DEPRESSION
     Route: 048
     Dates: start: 20040608
  12. PROTONIX [Concomitant]
     Route: 048
     Dates: start: 20040706

REACTIONS (2)
  - CHEST PAIN [None]
  - DIZZINESS [None]
